FAERS Safety Report 19880805 (Version 1)
Quarter: 2021Q3

REPORT INFORMATION
  Report Type: Report from Study
  Country: US (occurrence: US)
  Receive Date: 20210924
  Receipt Date: 20210924
  Transmission Date: 20211014
  Serious: Yes (Hospitalization)
  Sender: FDA-Public Use
  Company Number: US-G1-000342

PATIENT
  Age: 73 Year
  Sex: Male
  Weight: 63.5 kg

DRUGS (4)
  1. TRILACICLIB [Suspect]
     Active Substance: TRILACICLIB
     Indication: NON-SMALL CELL LUNG CANCER METASTATIC
  2. NO DRUG NAME [Suspect]
     Active Substance: UNSPECIFIED INGREDIENT
     Indication: NON-SMALL CELL LUNG CANCER METASTATIC
     Dosage: TIME INTERVAL: CYCLICAL; 75 MG/M2 ON DAY 1 OF EACH CYCLE
     Route: 041
     Dates: start: 20210805
  3. TRILACICLIB [Suspect]
     Active Substance: TRILACICLIB
     Indication: NON-SMALL CELL LUNG CANCER METASTATIC
     Dosage: TIME INTERVAL: CYCLICAL; 240 MG/M2 ON DAY 1 OF EACH CYCLE
     Route: 041
     Dates: start: 20210805
  4. NO DRUG NAME [Suspect]
     Active Substance: UNSPECIFIED INGREDIENT
     Indication: NON-SMALL CELL LUNG CANCER METASTATIC
     Dosage: TIME INTERVAL: CYCLICAL; 75 MG/M2 ON DAY 1 OF EACH CYCLE
     Route: 041
     Dates: start: 20210826

REACTIONS (1)
  - Pneumonia [Not Recovered/Not Resolved]

NARRATIVE: CASE EVENT DATE: 20210910
